FAERS Safety Report 4494218-X (Version None)
Quarter: 2004Q4

REPORT INFORMATION
  Report Type: 
  Country: None (occurrence: None)
  Receive Date: 20041102
  Receipt Date: 20041020
  Transmission Date: 20050328
  Serious: Yes (Hospitalization)
  Sender: FDA-Public Use
  Company Number: A02200403140

PATIENT
  Age: 63 Year
  Sex: Female

DRUGS (9)
  1. STILNOX - (ZOLPIDEM) [Suspect]
     Indication: SLEEP DISORDER
     Dosage: 10 MG OD ORAL
     Route: 048
  2. APROVEL - (IRBESARTAN) - TABLET [Suspect]
     Dosage: ORAL
     Route: 048
     Dates: end: 20040824
  3. VEINAMITOL - TROXERUTIN) - [Suspect]
     Dosage: ORAL
     Route: 048
     Dates: start: 20040515, end: 20040824
  4. TOPALGIC - (TRAMADOL HYDROCHLORIDE) [Suspect]
     Dosage: 150 MG BID, ORAL
     Route: 048
     Dates: start: 20040720, end: 20040912
  5. LAMALINE - (PARACETAMOL/OPIUM/CAFEINE) [Suspect]
     Dosage: ORAL
     Route: 048
     Dates: start: 20040515, end: 20040824
  6. NEURONTIN [Suspect]
     Dosage: 300 MG TID, ORAL
     Route: 048
     Dates: start: 20020301, end: 20040912
  7. DAKTARIN - (MICONAZOLE NITRATE) - OINTMENT [Suspect]
     Dosage: TOPICAL
     Route: 061
     Dates: start: 20040915
  8. COKENZEN - (CANDESARTAN+HYDROCHLOROTHIAZIDE) [Suspect]
     Dosage: 1 UNIT OD ORAL
     Route: 048
     Dates: start: 20040912
  9. RIVOTRIL - (CLONAZEPAM) - DROPS - 0.1 MG [Suspect]
     Dosage: 0.5 MG BID ORAL
     Route: 048
     Dates: start: 20040912

REACTIONS (9)
  - ALANINE AMINOTRANSFERASE INCREASED [None]
  - ASPARTATE AMINOTRANSFERASE INCREASED [None]
  - C-REACTIVE PROTEIN INCREASED [None]
  - EPSTEIN-BARR VIRUS INFECTION [None]
  - HAEMATOMA [None]
  - NEUTROPENIA [None]
  - NORMOCHROMIC NORMOCYTIC ANAEMIA [None]
  - THROMBOCYTOPENIC PURPURA [None]
  - WHITE BLOOD CELL COUNT DECREASED [None]
